FAERS Safety Report 24916164 (Version 1)
Quarter: 2025Q1

REPORT INFORMATION
  Report Type: Spontaneous
  Country: FR (occurrence: FR)
  Receive Date: 20250203
  Receipt Date: 20250203
  Transmission Date: 20250409
  Serious: Yes (Other)
  Sender: SANOFI AVENTIS
  Company Number: None

PATIENT
  Age: 63 Year
  Sex: Male
  Weight: 76 kg

DRUGS (2)
  1. LOVENOX [Suspect]
     Active Substance: ENOXAPARIN SODIUM
     Indication: Aortic dissection
     Dosage: 8000 IU, QD
     Route: 058
     Dates: start: 20241227, end: 20250104
  2. HEPARIN SODIUM [Suspect]
     Active Substance: HEPARIN SODIUM
     Indication: Aortic dissection
     Dosage: 1 DF, QD
     Route: 058
     Dates: start: 20241226, end: 20241226

REACTIONS (4)
  - Anti-platelet factor 4 antibody positive [Not Recovered/Not Resolved]
  - Anti-platelet factor 4 antibody positive [Not Recovered/Not Resolved]
  - Heparin-induced thrombocytopenia test [Not Recovered/Not Resolved]
  - Heparin-induced thrombocytopenia [Recovered/Resolved]

NARRATIVE: CASE EVENT DATE: 20250103
